FAERS Safety Report 10292616 (Version 2)
Quarter: 2014Q3

REPORT INFORMATION
  Report Type: Spontaneous
  Country: US (occurrence: US)
  Receive Date: 20140710
  Receipt Date: 20140710
  Transmission Date: 20150326
  Serious: Yes (Other)
  Sender: FDA-Public Use
  Company Number: US-NAPPMUNDI-USA-2013-0106524

PATIENT
  Age: 35 Year
  Sex: Female

DRUGS (1)
  1. BUTRANS [Suspect]
     Active Substance: BUPRENORPHINE
     Indication: PAIN
     Dosage: 20 MCG/HR, WEEKLY
     Route: 062
     Dates: start: 20130826

REACTIONS (5)
  - Application site pruritus [Unknown]
  - Application site discharge [Unknown]
  - Application site pain [Unknown]
  - Application site burn [Unknown]
  - Application site vesicles [Unknown]

NARRATIVE: CASE EVENT DATE: 20130829
